FAERS Safety Report 8761035 (Version 2)
Quarter: 2013Q2

REPORT INFORMATION
  Report Type: Report from Study
  Country: JP (occurrence: JP)
  Receive Date: 20120830
  Receipt Date: 20130404
  Transmission Date: 20140414
  Serious: Yes (Other)
  Sender: FDA-Public Use
  Company Number: JP-009507513-1208JPN010778

PATIENT
  Age: 57 Year
  Sex: Male
  Weight: 78 kg

DRUGS (5)
  1. PEGINTRON [Suspect]
     Indication: CHRONIC HEPATITIS C
     Dosage: 1.5 MICROGRAM PER KILOGRAM, QW
     Route: 058
     Dates: start: 20120612
  2. REBETOL [Suspect]
     Indication: CHRONIC HEPATITIS C
     Dosage: 800 MG, QD
     Route: 048
     Dates: start: 20120612
  3. TELAVIC [Suspect]
     Indication: CHRONIC HEPATITIS C
     Dosage: 2250 MG, QD
     Route: 048
     Dates: start: 20120612, end: 20120613
  4. SELBEX [Concomitant]
     Indication: PROPHYLAXIS
     Dosage: 3 DF, QD
     Route: 048
     Dates: start: 20120611
  5. MICARDIS [Concomitant]
     Indication: HYPERTENSION
     Dosage: 1.5 DF, QD
     Route: 048

REACTIONS (1)
  - Rash generalised [Recovering/Resolving]
